FAERS Safety Report 7419640-0 (Version None)
Quarter: 2011Q2

REPORT INFORMATION
  Report Type: 
  Country: None (occurrence: None)
  Receive Date: 20110418
  Receipt Date: 20110412
  Transmission Date: 20111010
  Serious: Yes (Other)
  Sender: FDA-Public Use
  Company Number: CA-US-EMD SERONO, INC.-7004377

PATIENT
  Sex: Female

DRUGS (5)
  1. CELEBREX [Concomitant]
     Indication: PAIN
  2. PAXIL [Concomitant]
     Indication: DEPRESSION
  3. IMOVANE [Concomitant]
     Indication: INSOMNIA
  4. REBIF [Suspect]
     Indication: RELAPSING-REMITTING MULTIPLE SCLEROSIS
     Route: 058
     Dates: start: 19990101, end: 20091101
  5. PANTOPRAZOLE [Concomitant]
     Indication: PRODUCT USED FOR UNKNOWN INDICATION

REACTIONS (2)
  - PULMONARY SARCOIDOSIS [None]
  - LYMPHADENOPATHY [None]
